FAERS Safety Report 4819751-X (Version None)
Quarter: 2005Q4

REPORT INFORMATION
  Report Type: 
  Country: None (occurrence: None)
  Receive Date: 20051102
  Receipt Date: 20051020
  Transmission Date: 20060501
  Serious: Yes (Other)
  Sender: FDA-Public Use
  Company Number: 2005144707

PATIENT
  Sex: Male
  Weight: 91.6266 kg

DRUGS (6)
  1. VIAGRA [Suspect]
     Indication: ERECTILE DYSFUNCTION
     Dosage: ABOUT  6 YEARS AGO
  2. LYRICA [Suspect]
     Indication: POLYNEUROPATHY
     Dosage: 100 MG (50 MG, 1 IN 2 D)
     Dates: start: 20051006
  3. ZESTRIL [Concomitant]
  4. CENTRUM (MINERALS NOS, VITAMINS NOS) [Concomitant]
  5. CAPITROL (HALQUINOL) [Concomitant]
  6. GLUCOTROL [Concomitant]

REACTIONS (19)
  - ARTHRALGIA [None]
  - ARTHROSCOPIC SURGERY [None]
  - BALANCE DISORDER [None]
  - CATARACT [None]
  - CONSTIPATION [None]
  - DIFFICULTY IN WALKING [None]
  - DRUG INEFFECTIVE [None]
  - DYSPNOEA EXERTIONAL [None]
  - ECZEMA [None]
  - ERECTILE DYSFUNCTION [None]
  - EXCESSIVE MASTURBATION [None]
  - FEELING ABNORMAL [None]
  - GAIT DISTURBANCE [None]
  - GLAUCOMA [None]
  - HYPOAESTHESIA [None]
  - IMPAIRED DRIVING ABILITY [None]
  - MEMORY IMPAIRMENT [None]
  - POLYNEUROPATHY [None]
  - VISUAL ACUITY REDUCED [None]
